FAERS Safety Report 8268442 (Version 3)
Quarter: 2012Q4

REPORT INFORMATION
  Report Type: Spontaneous
  Country: US (occurrence: None)
  Receive Date: 20111122
  Receipt Date: 20120426
  Transmission Date: 20130627
  Serious: No
  Sender: FDA-Public Use
  Company Number: PHHY2011US69197

PATIENT
  Age: 49 Year
  Sex: Female

DRUGS (3)
  1. GILENYA [Suspect]
     Indication: MULTIPLE SCLEROSIS
     Dosage: 0.5 MG, QD, ORAL, 0.5 MG, QD, ORAL
     Route: 048
     Dates: start: 20110914
  2. GILENYA [Suspect]
     Indication: MULTIPLE SCLEROSIS
     Dosage: 0.5 MG, QD, ORAL, 0.5 MG, QD, ORAL
     Route: 048
     Dates: start: 20110719
  3. GILENYA [Suspect]
     Indication: MULTIPLE SCLEROSIS
     Dates: start: 20111111

REACTIONS (6)
  - Tooth disorder [None]
  - Influenza like illness [None]
  - Pain [None]
  - Asthenia [None]
  - Medication error [None]
  - Drug hypersensitivity [None]
